FAERS Safety Report 14434539 (Version 1)
Quarter: 2018Q1

REPORT INFORMATION
  Report Type: Spontaneous
  Country: PR (occurrence: PR)
  Receive Date: 20180124
  Receipt Date: 20180124
  Transmission Date: 20180509
  Serious: No
  Sender: FDA-Public Use
  Company Number: PR-TARO-2017TAR00734

PATIENT
  Age: 22 Year
  Sex: Female
  Weight: 52.15 kg

DRUGS (2)
  1. CLOTRIMAZOLE VAGINAL CREAM USP 1% 7 DAY [Suspect]
     Active Substance: CLOTRIMAZOLE
     Indication: ERYTHEMA
     Dosage: 1 DOSAGE UNITS, 2X/DAY
     Route: 067
     Dates: start: 20170828
  2. CLOTRIMAZOLE VAGINAL CREAM USP 1% 7 DAY [Suspect]
     Active Substance: CLOTRIMAZOLE
     Indication: PRURITUS

REACTIONS (2)
  - Vaginal haemorrhage [Not Recovered/Not Resolved]
  - Inappropriate schedule of drug administration [Not Recovered/Not Resolved]

NARRATIVE: CASE EVENT DATE: 20170828
